FAERS Safety Report 7610496-X (Version None)
Quarter: 2011Q3

REPORT INFORMATION
  Report Type: 
  Country: None (occurrence: None)
  Receive Date: 20110715
  Receipt Date: 20110201
  Transmission Date: 20111222
  Serious: Yes (Other)
  Sender: FDA-Public Use
  Company Number: US-BAYER-2011-008075

PATIENT
  Age: 60 Year
  Sex: Male
  Weight: 95.238 kg

DRUGS (38)
  1. TRASYLOL [Suspect]
     Indication: CARDIAC OPERATION
     Dosage: 200 ML, BOLUS
     Route: 042
     Dates: start: 20051227, end: 20051227
  2. PRAVACHOL [Concomitant]
     Dosage: 40 MG, UNK
     Route: 048
  3. SYNTHROID [Concomitant]
     Dosage: 0.025 MG, QD
     Route: 048
  4. SPIRONOLACTONE [Concomitant]
     Dosage: 25 MG, QD
     Route: 048
  5. INSULIN [Concomitant]
     Route: 042
  6. PAPAVERINE [Concomitant]
     Dosage: 300 MG, UNK
     Route: 042
  7. TRASYLOL [Suspect]
     Indication: MITRAL VALVE REPAIR
     Dosage: 200CC, PUMP PRIME
     Route: 042
     Dates: start: 20051227, end: 20051227
  8. ALLOPURINOL [Concomitant]
     Dosage: 300 MG, QD
     Route: 048
  9. ACIPHEX [Concomitant]
     Dosage: 20 MG, UNK
     Route: 048
  10. GLIPIZIDE [Concomitant]
     Dosage: 20 MG, QD
     Route: 048
  11. DIPRIVAN [Concomitant]
     Dosage: UNK
     Route: 042
     Dates: start: 20051227, end: 20051227
  12. HEPARIN [Concomitant]
     Dosage: 35000 U, UNK
     Route: 042
     Dates: start: 20051227
  13. LASIX [Concomitant]
     Dosage: 80 MG, QD
     Route: 048
  14. GLUCOPHAGE [Concomitant]
     Dosage: 1000 MG, BID
     Route: 048
  15. POTASSIUM CHLORIDE [Concomitant]
     Dosage: 10MEQ
  16. STARLIX [Concomitant]
     Dosage: 120 MG, TID
     Route: 048
  17. NITROGLYCERIN [Concomitant]
     Dosage: UNK
     Route: 042
     Dates: start: 20051227, end: 20051227
  18. EPINEPHRINE [Concomitant]
     Dosage: UNK
     Route: 042
     Dates: start: 20051227, end: 20051227
  19. ACETYLSALICYLIC ACID SRT [Concomitant]
     Dosage: 81 MG, QD
  20. COREG [Concomitant]
     Dosage: 6.25 MG, BID
     Route: 048
  21. ALTACE [Concomitant]
     Dosage: 5 MG, QD
     Route: 048
  22. MANNITOL [Concomitant]
     Dosage: 25 G, UNK
     Route: 042
     Dates: start: 20051227, end: 20051227
  23. VIAGRA [Concomitant]
     Dosage: 100 MG, PRN
     Route: 048
  24. LEVOPHED [Concomitant]
     Route: 042
  25. RED BLOOD CELLS [Concomitant]
     Dosage: 500 CC
     Dates: start: 20051229
  26. IMDUR [Concomitant]
     Dosage: 30 MG, QD
     Route: 048
  27. COUMADIN [Concomitant]
     Dosage: 4.5 MG, QD, LONG TERM USE
     Route: 048
  28. MILRINONE [Concomitant]
     Route: 042
  29. PLAVIX [Concomitant]
     Dosage: 75 MG, QD
     Route: 048
  30. ALDACTONE [Concomitant]
     Dosage: 25 MG, QD
     Route: 048
  31. XALATAN [Concomitant]
     Dosage: 1 GTT QHS, EYE DROPS
  32. ZAROXOLYN [Concomitant]
     Dosage: 2.5 MG, QD
     Route: 048
  33. TRASYLOL [Suspect]
     Indication: CORONARY ARTERY BYPASS
     Dosage: 1 ML INITIAL TEST DOSE
     Route: 042
     Dates: start: 20051229, end: 20051229
  34. TRASYLOL [Suspect]
     Indication: TRICUSPID VALVE REPAIR
     Dosage: 50ML/HOUR, INFUSION
     Route: 042
     Dates: start: 20051227, end: 20051227
  35. AVANDIA [Concomitant]
     Dosage: 4 MG, UNK
     Route: 048
  36. NITROSTAT [Concomitant]
     Dosage: 0.4 MG, PRN
     Route: 060
  37. PROPOFOL [Concomitant]
     Dosage: UNK
     Route: 042
     Dates: start: 20051227, end: 20051227
  38. ANCEF [Concomitant]
     Dosage: 2 G, UNK
     Route: 042
     Dates: start: 20051227

REACTIONS (12)
  - RENAL INJURY [None]
  - RENAL FAILURE [None]
  - RENAL FAILURE ACUTE [None]
  - CONDITION AGGRAVATED [None]
  - UNEVALUABLE EVENT [None]
  - ANXIETY [None]
  - INJURY [None]
  - PAIN [None]
  - NEPHROPATHY [None]
  - DISABILITY [None]
  - STRESS [None]
  - DEFORMITY [None]
